FAERS Safety Report 7514730-6 (Version None)
Quarter: 2011Q2

REPORT INFORMATION
  Report Type: 
  Country: None (occurrence: None)
  Receive Date: 20110601
  Receipt Date: 20110506
  Transmission Date: 20111010
  Serious: Yes (Other)
  Sender: FDA-Public Use
  Company Number: US-BAYER-201037544NA

PATIENT
  Age: 32 Year
  Sex: Female
  Weight: 74.83 kg

DRUGS (14)
  1. NAPROXEN (ALEVE) [Concomitant]
     Indication: PAIN
     Dosage: UNK UNK, PRN
  2. CETIRIZINE HCL [Concomitant]
     Indication: HYPERSENSITIVITY
     Dosage: UNK
     Route: 048
     Dates: start: 20070528
  3. PRILOSEC [Concomitant]
     Indication: GASTRIC DISORDER
     Dosage: UNK
     Route: 048
     Dates: start: 20070528
  4. ALLERGY SHOTS [Concomitant]
     Indication: HYPERSENSITIVITY
     Dosage: UNK
     Dates: start: 20030101
  5. TUMS [CALCIUM CARBONATE] [Concomitant]
     Indication: DYSPEPSIA
  6. YASMIN [Suspect]
     Indication: ORAL CONTRACEPTION
     Dosage: 1 DF, QD
     Route: 048
     Dates: start: 20040925
  7. PROVENTIL [Concomitant]
     Indication: ASTHMA
     Dosage: UNK UNK, PRN
     Dates: start: 20030101
  8. DROSPIRENONE AND ETHINYL ESTRADIOL [Suspect]
     Indication: PRODUCT USED FOR UNKNOWN INDICATION
     Route: 048
     Dates: start: 20040925
  9. ZYRTEC-D 12 HOUR [Concomitant]
     Indication: HYPERSENSITIVITY
     Dosage: 1 DF, QD
     Dates: start: 20040101, end: 20080101
  10. TUMS [CALCIUM CARBONATE] [Concomitant]
     Indication: GASTROOESOPHAGEAL REFLUX DISEASE
     Dosage: UNK UNK, PRN
  11. YASMIN [Suspect]
     Dosage: UNK
     Dates: start: 20040301, end: 20070501
  12. DROSPIRENONE AND ETHINYL ESTRADIOL [Suspect]
     Dosage: UNK
     Dates: start: 20090401, end: 20091001
  13. ADVAIR DISKUS 100/50 [Concomitant]
     Indication: ASTHMA
     Dosage: UNK
     Dates: start: 20010101
  14. CLARITIN-D 24 HOUR [Concomitant]
     Indication: HYPERSENSITIVITY
     Dosage: UNK
     Dates: start: 20010101

REACTIONS (6)
  - CHOLESTEROSIS [None]
  - GALLBLADDER INJURY [None]
  - PAIN [None]
  - CHOLECYSTITIS CHRONIC [None]
  - EMOTIONAL DISTRESS [None]
  - SCAR [None]
